FAERS Safety Report 13902967 (Version 1)
Quarter: 2017Q3

REPORT INFORMATION
  Report Type: Spontaneous
  Country: US (occurrence: US)
  Receive Date: 20170824
  Receipt Date: 20170824
  Transmission Date: 20171127
  Serious: No
  Sender: FDA-Public Use
  Company Number: US-ASTRAZENECA-2017SE86048

PATIENT
  Age: 26916 Day
  Sex: Female
  Weight: 75.8 kg

DRUGS (1)
  1. TUDORZA PRESSAIR [Suspect]
     Active Substance: ACLIDINIUM BROMIDE
     Indication: CHRONIC OBSTRUCTIVE PULMONARY DISEASE
     Route: 055

REACTIONS (4)
  - Confusional state [Unknown]
  - Memory impairment [Unknown]
  - Feeling abnormal [Unknown]
  - Device issue [Unknown]

NARRATIVE: CASE EVENT DATE: 20170821
